FAERS Safety Report 21236377 (Version 2)
Quarter: 2022Q4

REPORT INFORMATION
  Report Type: Report from Study
  Country: JP (occurrence: JP)
  Receive Date: 20220822
  Receipt Date: 20221013
  Transmission Date: 20230112
  Serious: Yes (Other)
  Sender: FDA-Public Use
  Company Number: JP-BEH-2022146463

PATIENT
  Age: 64 Year
  Sex: Female
  Weight: 61 kg

DRUGS (12)
  1. HIZENTRA [Suspect]
     Active Substance: HUMAN IMMUNOGLOBULIN G
     Indication: Chronic inflammatory demyelinating polyradiculoneuropathy
     Dosage: 40 MILLILITER, BID (A.M. AND P.M.), ADMINISTRATION DURATION: 60 MINUTES
     Route: 058
     Dates: start: 20210730, end: 20210730
  2. HIZENTRA [Suspect]
     Active Substance: HUMAN IMMUNOGLOBULIN G
     Dosage: 40 MILLILITER, SINGLE
     Route: 058
     Dates: start: 20210731, end: 20210731
  3. HIZENTRA [Suspect]
     Active Substance: HUMAN IMMUNOGLOBULIN G
     Dosage: 40 MILLILITER, SINGLE
     Route: 058
     Dates: start: 20210731, end: 20210731
  4. HIZENTRA [Suspect]
     Active Substance: HUMAN IMMUNOGLOBULIN G
     Dosage: 120 MILLILITER, SINGLE
     Route: 058
     Dates: start: 20210806, end: 20210806
  5. HIZENTRA [Suspect]
     Active Substance: HUMAN IMMUNOGLOBULIN G
     Dosage: 120 MILLILITER, SINGLE, ADMINISTRATION DURATION: 60 MINUTES
     Route: 058
     Dates: start: 20210813, end: 20210813
  6. HIZENTRA [Suspect]
     Active Substance: HUMAN IMMUNOGLOBULIN G
     Dosage: 120 MILLILITER, SINGLE
     Route: 058
     Dates: start: 20210820, end: 20210820
  7. HIZENTRA [Suspect]
     Active Substance: HUMAN IMMUNOGLOBULIN G
     Dosage: 120 MILLILITER, SINGLE
     Route: 058
     Dates: start: 20210827, end: 20210827
  8. HIZENTRA [Suspect]
     Active Substance: HUMAN IMMUNOGLOBULIN G
     Dosage: 120 MILLILITER, SINGLE
     Route: 058
     Dates: start: 20210903, end: 20210903
  9. HIZENTRA [Suspect]
     Active Substance: HUMAN IMMUNOGLOBULIN G
     Dosage: 120 MILLILITER, SINGLE
     Route: 058
     Dates: start: 20210910, end: 20210910
  10. HIZENTRA [Suspect]
     Active Substance: HUMAN IMMUNOGLOBULIN G
     Dosage: 120 MILLILITER, SINGLE
     Route: 058
     Dates: start: 20210917, end: 20210917
  11. HIZENTRA [Suspect]
     Active Substance: HUMAN IMMUNOGLOBULIN G
     Dosage: 120 MILLILITER, SINGLE
     Route: 058
     Dates: start: 20210924, end: 20210924
  12. HIZENTRA [Suspect]
     Active Substance: HUMAN IMMUNOGLOBULIN G
     Dosage: 120 MILLILITER, SINGLE
     Route: 058
     Dates: start: 20211001, end: 20211001

REACTIONS (6)
  - Therapeutic product effect incomplete [Unknown]
  - Injection site pruritus [Recovered/Resolved]
  - Injection site swelling [Recovered/Resolved]
  - Injection site pruritus [Recovered/Resolved]
  - Injection site erythema [Recovered/Resolved]
  - Injection site pruritus [Recovered/Resolved]

NARRATIVE: CASE EVENT DATE: 20210731
